FAERS Safety Report 5513425-8 (Version None)
Quarter: 2007Q4

REPORT INFORMATION
  Report Type: 
  Country: None (occurrence: None)
  Receive Date: 20071112
  Receipt Date: 20071031
  Transmission Date: 20080405
  Serious: Yes (Other)
  Sender: FDA-Public Use
  Company Number: HU-PFIZER INC-2007081580

PATIENT
  Age: 66 Year
  Sex: Female

DRUGS (1)
  1. PREGABALIN [Suspect]
     Indication: PAIN
     Route: 048

REACTIONS (1)
  - HEPATITIS A [None]
